FAERS Safety Report 17882747 (Version 28)
Quarter: 2025Q3

REPORT INFORMATION
  Report Type: Report from Study
  Country: US (occurrence: US)
  Receive Date: 20200610
  Receipt Date: 20250919
  Transmission Date: 20251020
  Serious: Yes (Hospitalization, Other)
  Sender: TAKEDA
  Company Number: US-SHIRE-US202019162

PATIENT
  Age: 10 Year
  Sex: Female
  Weight: 27 kg

DRUGS (23)
  1. HUMAN IMMUNOGLOBULIN G [Suspect]
     Active Substance: HUMAN IMMUNOGLOBULIN G
     Indication: Immunodeficiency
     Dosage: 5 GRAM, 1/WEEK
  2. HUMAN IMMUNOGLOBULIN G [Suspect]
     Active Substance: HUMAN IMMUNOGLOBULIN G
     Dosage: 6 GRAM, Q2WEEKS
  3. HUMAN IMMUNOGLOBULIN G [Suspect]
     Active Substance: HUMAN IMMUNOGLOBULIN G
     Dosage: 5 GRAM, 1/WEEK
  4. VIGABATRIN [Suspect]
     Active Substance: VIGABATRIN
     Indication: Product used for unknown indication
  5. DIPHENHYDRAMINE [Concomitant]
     Active Substance: DIPHENHYDRAMINE
  6. NEXIUM [Concomitant]
     Active Substance: ESOMEPRAZOLE MAGNESIUM
  7. SYMBICORT [Concomitant]
     Active Substance: BUDESONIDE\FORMOTEROL FUMARATE DIHYDRATE
  8. EPINEPHRINE [Concomitant]
     Active Substance: EPINEPHRINE
  9. FLUTICASONE PROPIONATE [Concomitant]
     Active Substance: FLUTICASONE PROPIONATE
  10. SINGULAIR [Concomitant]
     Active Substance: MONTELUKAST SODIUM
  11. CLONAZEPAM [Concomitant]
     Active Substance: CLONAZEPAM
  12. ALLEGRA ALLERGY [Concomitant]
     Active Substance: FEXOFENADINE HYDROCHLORIDE
  13. TRILEPTAL [Concomitant]
     Active Substance: OXCARBAZEPINE
  14. ACETAMINOPHEN [Concomitant]
     Active Substance: ACETAMINOPHEN
  15. LORATADINE [Concomitant]
     Active Substance: LORATADINE
  16. ALBUTEROL SULFATE [Concomitant]
     Active Substance: ALBUTEROL SULFATE
  17. LIDOCAINE [Concomitant]
     Active Substance: LIDOCAINE
  18. PROAIR HFA [Concomitant]
     Active Substance: ALBUTEROL SULFATE
  19. SUPRAX [Concomitant]
     Active Substance: CEFIXIME
  20. FIBER LAXATIVE [Concomitant]
  21. FLUTICASONE [Concomitant]
     Active Substance: FLUTICASONE
  22. PROVENTIL HFA [Concomitant]
     Active Substance: ALBUTEROL SULFATE
  23. CEFIXIME [Concomitant]
     Active Substance: CEFIXIME

REACTIONS (22)
  - Pharyngitis streptococcal [Unknown]
  - Feeding intolerance [Unknown]
  - Weight decreased [Unknown]
  - Urinary tract infection [Unknown]
  - Dehydration [Unknown]
  - Pneumonia [Unknown]
  - Respiratory tract infection [Unknown]
  - Pancreatitis [Unknown]
  - Seizure [Recovered/Resolved]
  - Dyspepsia [Unknown]
  - Dermatitis contact [Unknown]
  - Infection [Unknown]
  - Ear infection [Recovered/Resolved]
  - Seasonal allergy [Unknown]
  - Hypopnoea [Unknown]
  - Product dose omission issue [Unknown]
  - Upper respiratory tract infection [Unknown]
  - Injection site mass [Unknown]
  - Respiratory rate increased [Unknown]
  - Infusion site erythema [Unknown]
  - Erythema [Unknown]
  - Hypersensitivity [Unknown]

NARRATIVE: CASE EVENT DATE: 20210329
